FAERS Safety Report 25727340 (Version 4)
Quarter: 2025Q3

REPORT INFORMATION
  Report Type: Spontaneous
  Country: CN (occurrence: CN)
  Receive Date: 20250826
  Receipt Date: 20250924
  Transmission Date: 20251021
  Serious: Yes (Hospitalization, Other)
  Sender: ELI LILLY AND COMPANY
  Company Number: CN-ELI_LILLY_AND_COMPANY-CN202508015535

PATIENT
  Age: 77 Year
  Sex: Female
  Weight: 50.5 kg

DRUGS (4)
  1. DONANEMAB [Suspect]
     Active Substance: DONANEMAB
     Indication: Cognitive disorder
     Dosage: 700 MG, UNKNOWN
     Route: 042
     Dates: start: 20250717
  2. DONANEMAB [Suspect]
     Active Substance: DONANEMAB
     Indication: Dementia Alzheimer^s type
     Dosage: 1400 MG, MONTHLY (1/M), 20 MIL
     Route: 042
     Dates: start: 20250814, end: 20250814
  3. DIPHENHYDRAMINE [Concomitant]
     Active Substance: DIPHENHYDRAMINE
     Indication: Premedication
     Route: 042
  4. DIPHENHYDRAMINE [Concomitant]
     Active Substance: DIPHENHYDRAMINE
     Indication: Prophylaxis

REACTIONS (28)
  - Bradycardia [Recovering/Resolving]
  - Myocardial injury [Unknown]
  - Palpitations [Recovering/Resolving]
  - Cerebellar microhaemorrhage [Unknown]
  - Emotional distress [Recovering/Resolving]
  - Heart sounds abnormal [Recovering/Resolving]
  - Ventricular extrasystoles [Recovering/Resolving]
  - Supraventricular extrasystoles [Recovering/Resolving]
  - Feeling cold [Recovering/Resolving]
  - Somnolence [Recovering/Resolving]
  - Tremor [Recovering/Resolving]
  - Off label use [Unknown]
  - Chest pain [Unknown]
  - Flushing [Unknown]
  - Blood pressure abnormal [Unknown]
  - Anxiety [Unknown]
  - Oxygen saturation decreased [Unknown]
  - Peripheral coldness [Unknown]
  - Infusion related reaction [Unknown]
  - Chills [Unknown]
  - Erythema [Unknown]
  - Dyspnoea [Unknown]
  - Hyperhidrosis [Unknown]
  - Headache [Unknown]
  - Blood pressure increased [Unknown]
  - Chest discomfort [Unknown]
  - Nausea [Unknown]
  - Vomiting [Unknown]

NARRATIVE: CASE EVENT DATE: 20250814
